FAERS Safety Report 8686256 (Version 2)
Quarter: 2012Q4

REPORT INFORMATION
  Report Type: 
  Country: US (occurrence: US)
  Receive Date: 20120726
  Receipt Date: 20121204
  Transmission Date: 20130627
  Serious: No
  Sender: FDA-Public Use
  Company Number: US-ASTRAZENECA-2011SE59826

PATIENT
  Age: 34 Year
  Sex: Female
  Weight: 74.8 kg

DRUGS (4)
  1. SEROQUEL [Suspect]
     Indication: DEPRESSION
     Route: 048
     Dates: start: 20110913
  2. SEROQUEL [Suspect]
     Indication: DEPRESSION
     Route: 048
  3. IBUPROFEN [Concomitant]
     Indication: HEADACHE
  4. CELEXA [Concomitant]

REACTIONS (7)
  - Cough [Unknown]
  - Nasopharyngitis [Unknown]
  - Stress [Unknown]
  - Chest discomfort [Unknown]
  - Dysphonia [Unknown]
  - Malaise [Unknown]
  - Influenza [Unknown]
